FAERS Safety Report 6760612-7 (Version None)
Quarter: 2010Q2

REPORT INFORMATION
  Report Type: 
  Country: None (occurrence: None)
  Receive Date: 20100608
  Receipt Date: 20100527
  Transmission Date: 20101027
  Serious: Yes (Other)
  Sender: FDA-Public Use
  Company Number: US-PFIZER INC-2010067537

PATIENT
  Sex: Female
  Weight: 79.365 kg

DRUGS (1)
  1. ZOLOFT [Suspect]
     Indication: STRESS
     Dosage: 25 MG, 1X/DAY
     Route: 048
     Dates: start: 20091001

REACTIONS (2)
  - HAEMORRHAGE [None]
  - LYMPHATIC SYSTEM NEOPLASM [None]
